FAERS Safety Report 16715808 (Version 1)
Quarter: 2019Q3

REPORT INFORMATION
  Report Type: Spontaneous
  Country: US (occurrence: US)
  Receive Date: 20190819
  Receipt Date: 20190819
  Transmission Date: 20191005
  Serious: Yes (Death)
  Sender: FDA-Public Use
  Company Number: US-PFIZER INC-2019351197

PATIENT
  Age: 69 Year
  Sex: Male

DRUGS (3)
  1. AZATHIOPRINE. [Suspect]
     Active Substance: AZATHIOPRINE
     Indication: MYASTHENIA GRAVIS
     Dosage: 150 MG, (CUMULATIVE DOSE OF 69 GRAMS)
     Dates: start: 19991001, end: 20001201
  2. DOCETAXEL. [Suspect]
     Active Substance: DOCETAXEL
     Indication: NON-SMALL CELL LUNG CANCER
     Dosage: UNK (GIVEN ON DAY 1)
  3. CARBOPLATIN. [Suspect]
     Active Substance: CARBOPLATIN
     Indication: NON-SMALL CELL LUNG CANCER
     Dosage: UNK (AUC 7.5)

REACTIONS (5)
  - Second primary malignancy [Fatal]
  - Acute myeloid leukaemia [Fatal]
  - Myasthenia gravis [Fatal]
  - Myelodysplastic syndrome [Fatal]
  - Infection [Fatal]

NARRATIVE: CASE EVENT DATE: 20010201
